FAERS Safety Report 6546873-8 (Version None)
Quarter: 2010Q1

REPORT INFORMATION
  Report Type: 
  Country: None (occurrence: None)
  Receive Date: 20100122
  Receipt Date: 20100113
  Transmission Date: 20100710
  Serious: Yes (Other)
  Sender: FDA-Public Use
  Company Number: BR-ASTRAZENECA-2010SE01682

PATIENT
  Age: 51 Year
  Sex: Female
  Weight: 56 kg

DRUGS (4)
  1. NEXIUM [Suspect]
     Indication: GASTROOESOPHAGEAL REFLUX DISEASE
     Route: 048
     Dates: start: 20091117, end: 20091205
  2. LIPITOR [Concomitant]
     Indication: CHOLESTEROSIS
     Dosage: DAILY
     Route: 048
     Dates: start: 20090301
  3. RISEDRONATE SODIUM [Concomitant]
     Indication: OSTEOPOROSIS
     Dosage: ONCE A WEEK
     Route: 048
     Dates: start: 20060101
  4. CALCIUM [Concomitant]
     Indication: OSTEOPOROSIS
     Dosage: TWO TIMES A DAY
     Route: 048
     Dates: start: 20060101

REACTIONS (10)
  - ARTHRALGIA [None]
  - AURICULAR SWELLING [None]
  - BURNING SENSATION [None]
  - ERYTHEMA [None]
  - EYE SWELLING [None]
  - GENERALISED ERYTHEMA [None]
  - INSOMNIA [None]
  - PRURITUS GENERALISED [None]
  - PYREXIA [None]
  - VOMITING [None]
